FAERS Safety Report 22263814 (Version 1)
Quarter: 2023Q2

REPORT INFORMATION
  Report Type: Spontaneous
  Country: US (occurrence: None)
  Receive Date: 20230428
  Receipt Date: 20230428
  Transmission Date: 20230722
  Serious: Yes (Life-Threatening, Hospitalization)
  Sender: FDA-Public Use
  Company Number: 2023A098796

PATIENT
  Age: 39 Year
  Sex: Female

DRUGS (14)
  1. QUETIAPINE [Suspect]
     Active Substance: QUETIAPINE
     Route: 048
  2. CITALOPRAM [Suspect]
     Active Substance: CITALOPRAM HYDROBROMIDE
  3. BUSPIRONE [Suspect]
     Active Substance: BUSPIRONE HYDROCHLORIDE
  4. AMITRIPTYLINE [Suspect]
     Active Substance: AMITRIPTYLINE
  5. LEVOTHYROXINE [Suspect]
     Active Substance: LEVOTHYROXINE
  6. ZONISAMIDE [Suspect]
     Active Substance: ZONISAMIDE
  7. GABAPENTIN [Suspect]
     Active Substance: GABAPENTIN
  8. METFORMIN [Suspect]
     Active Substance: METFORMIN HYDROCHLORIDE
  9. PRAVASTATIN [Suspect]
     Active Substance: PRAVASTATIN
  10. MECLIZINE [Suspect]
     Active Substance: MECLIZINE HYDROCHLORIDE
  11. PROMETHAZINE [Suspect]
     Active Substance: PROMETHAZINE HYDROCHLORIDE
  12. PROCHLORPERAZINE [Suspect]
     Active Substance: PROCHLORPERAZINE
  13. SULFAMETHOXAZOLE\TRIMETHOPRIM [Suspect]
     Active Substance: SULFAMETHOXAZOLE\TRIMETHOPRIM
     Indication: Dysuria
  14. METHADONE [Suspect]
     Active Substance: METHADONE HYDROCHLORIDE
     Indication: Pelvic pain

REACTIONS (1)
  - Serotonin syndrome [Recovering/Resolving]
